FAERS Safety Report 18329971 (Version 11)
Quarter: 2021Q3

REPORT INFORMATION
  Report Type: Spontaneous
  Country: US (occurrence: US)
  Receive Date: 20200930
  Receipt Date: 20210809
  Transmission Date: 20211014
  Serious: Yes (Hospitalization, Other)
  Sender: FDA-Public Use
  Company Number: US-SA-2020SA265201

PATIENT
  Age: 77 Year
  Sex: Female

DRUGS (87)
  1. VITAMIN C [Concomitant]
     Active Substance: ASCORBIC ACID
  2. VITAMIN C [Concomitant]
     Active Substance: ASCORBIC ACID
  3. SENNA PLUS [SENNA ALEXANDRINA] [Concomitant]
  4. LACTULOSE. [Concomitant]
     Active Substance: LACTULOSE
  5. COCONUT OIL [Concomitant]
     Active Substance: COCONUT OIL
     Route: 065
  6. NASAFLO NETI POT [SODIUM BICARBONATE] [Concomitant]
     Route: 065
  7. GLUCOSAMINE CHONDROITIN ADVANCED [Concomitant]
     Dosage: UNK
  8. ARIPIPRAZOLE. [Concomitant]
     Active Substance: ARIPIPRAZOLE
  9. AZITHROMYCIN ANHYDROUS. [Concomitant]
     Active Substance: AZITHROMYCIN ANHYDROUS
  10. VITAMIN B COMPLEX [Concomitant]
     Active Substance: CYANOCOBALAMIN\DEXPANTHENOL\NIACINAMIDE\PYRIDOXINE HYDROCHLORIDE\RIBOFLAVIN 5^-PHOSPHATE SODIUM\THIAMINE HYDROCHLORIDE\VITAMIN B COMPLEX
  11. MAGNESIUM [Concomitant]
     Active Substance: MAGNESIUM
  12. MAGNESIUM [Concomitant]
     Active Substance: MAGNESIUM
  13. VITAMIN D3 [Concomitant]
     Active Substance: CHOLECALCIFEROL
  14. ZINC. [Concomitant]
     Active Substance: ZINC
  15. MUCINEX [Concomitant]
     Active Substance: GUAIFENESIN
  16. AMITIZA [Concomitant]
     Active Substance: LUBIPROSTONE
     Route: 065
  17. LEXAPRO [Concomitant]
     Active Substance: ESCITALOPRAM OXALATE
  18. QVAR [Concomitant]
     Active Substance: BECLOMETHASONE DIPROPIONATE
  19. SYNTHROID [Concomitant]
     Active Substance: LEVOTHYROXINE SODIUM
  20. VITAMINS NOS [Concomitant]
     Active Substance: VITAMINS
  21. HYDROMORPHONE HCL [Concomitant]
     Active Substance: HYDROMORPHONE HYDROCHLORIDE
  22. NYSTATIN. [Concomitant]
     Active Substance: NYSTATIN
     Dosage: UNK
  23. AMITRIPTYLINE HCL [Concomitant]
     Active Substance: AMITRIPTYLINE
  24. LASIX [Concomitant]
     Active Substance: FUROSEMIDE
     Dosage: UNK
     Route: 065
  25. TRAMADOL HYDROCHLORIDE. [Concomitant]
     Active Substance: TRAMADOL HYDROCHLORIDE
     Route: 065
  26. CLONAZEPAM. [Concomitant]
     Active Substance: CLONAZEPAM
  27. LOPERAMIDE [Concomitant]
     Active Substance: LOPERAMIDE
  28. OMEPRAZOLE. [Concomitant]
     Active Substance: OMEPRAZOLE
  29. OXYGEN. [Concomitant]
     Active Substance: OXYGEN
  30. ZINC. [Concomitant]
     Active Substance: ZINC
  31. TYLENOL [Concomitant]
     Active Substance: ACETAMINOPHEN
  32. MISOPROSTOL. [Concomitant]
     Active Substance: MISOPROSTOL
     Route: 065
  33. ABILIFY [Concomitant]
     Active Substance: ARIPIPRAZOLE
  34. ESTRADIOL. [Concomitant]
     Active Substance: ESTRADIOL
  35. CLARITIN?D NOS [Concomitant]
     Active Substance: LORATADINE\PSEUDOEPHEDRINE SULFATE
     Route: 065
  36. ALEVE [Concomitant]
     Active Substance: NAPROXEN SODIUM
  37. BENADRYL ITCH STOPPING CREAM [Concomitant]
  38. DOTTI [Concomitant]
     Active Substance: ESTRADIOL
     Dosage: UNK
  39. OFEV [Concomitant]
     Active Substance: NINTEDANIB
  40. FISH OIL [Concomitant]
     Active Substance: FISH OIL
  41. PRESERVISION AREDS [Concomitant]
     Active Substance: MINERALS\VITAMINS
  42. PRESERVISION AREDS [Concomitant]
     Active Substance: MINERALS\VITAMINS
  43. ABILIFY [Concomitant]
     Active Substance: ARIPIPRAZOLE
  44. ALBUTEROL SULFATE. [Concomitant]
     Active Substance: ALBUTEROL SULFATE
  45. DULCOLAX STOOL SOFTENER [Concomitant]
     Active Substance: DOCUSATE SODIUM
  46. EFFEXOR XR [Concomitant]
     Active Substance: VENLAFAXINE HYDROCHLORIDE
  47. PROGESTERONE. [Concomitant]
     Active Substance: PROGESTERONE
  48. SINGULAIR [Concomitant]
     Active Substance: MONTELUKAST SODIUM
  49. TRIAMCINOLONE [Concomitant]
     Active Substance: TRIAMCINOLONE
     Dosage: UNK
  50. ONDANSETRON HCL [Concomitant]
     Active Substance: ONDANSETRON HYDROCHLORIDE
  51. FLUTICASONE PROPIONATE. [Concomitant]
     Active Substance: FLUTICASONE PROPIONATE
  52. MONTELUKAST SODIUM. [Concomitant]
     Active Substance: MONTELUKAST SODIUM
     Dosage: UNK
  53. DUPIXENT [Suspect]
     Active Substance: DUPILUMAB
     Indication: ASTHMA
  54. LASIX [Concomitant]
     Active Substance: FUROSEMIDE
  55. VITAMIN B COMPLEX [Concomitant]
     Active Substance: CYANOCOBALAMIN\DEXPANTHENOL\NIACINAMIDE\PYRIDOXINE HYDROCHLORIDE\RIBOFLAVIN 5^-PHOSPHATE SODIUM\THIAMINE HYDROCHLORIDE\VITAMIN B COMPLEX
  56. VITAMIN D3 [Concomitant]
     Active Substance: CHOLECALCIFEROL
  57. MUCINEX [Concomitant]
     Active Substance: GUAIFENESIN
     Dosage: UNK, Q12H
  58. SENNA PLUS [SENNA ALEXANDRINA] [Concomitant]
  59. PREDNISONE. [Concomitant]
     Active Substance: PREDNISONE
     Route: 065
  60. FOLIC ACID. [Concomitant]
     Active Substance: FOLIC ACID
     Route: 065
  61. ZOFRAN [Concomitant]
     Active Substance: ONDANSETRON HYDROCHLORIDE
     Route: 065
  62. DILAUDID [Concomitant]
     Active Substance: HYDROMORPHONE HYDROCHLORIDE
  63. FLONASE ALLERGY RELIEF [Concomitant]
     Active Substance: FLUTICASONE PROPIONATE
  64. AMOXICILLIN;CLAVULANATE POTASSIUM [Concomitant]
     Active Substance: AMOXICILLIN\CLAVULANATE POTASSIUM
  65. DOXYCYCLINE MONOHYDRATE [Concomitant]
     Active Substance: DOXYCYCLINE
     Dosage: UNK
  66. CLOBETASOL PROPIONATE. [Concomitant]
     Active Substance: CLOBETASOL PROPIONATE
  67. DUPIXENT [Suspect]
     Active Substance: DUPILUMAB
     Indication: DERMATITIS ATOPIC
     Dosage: 300 MG, QOW
     Route: 058
     Dates: start: 20200821
  68. FISH OIL [Concomitant]
     Active Substance: FISH OIL
  69. MAGNESIUM OXIDE. [Concomitant]
     Active Substance: MAGNESIUM OXIDE
     Route: 065
  70. SENNA LAXATIVE [Concomitant]
     Active Substance: SENNOSIDES
     Route: 065
  71. PROBIOTIC 10 [Concomitant]
     Active Substance: DIETARY SUPPLEMENT\PROBIOTICS
  72. SINGULAIR [Concomitant]
     Active Substance: MONTELUKAST SODIUM
  73. EFFEXOR [Concomitant]
     Active Substance: VENLAFAXINE HYDROCHLORIDE
     Dosage: UNK
  74. EPIPEN [Concomitant]
     Active Substance: EPINEPHRINE
     Dosage: UNK
  75. ESCITALOPRAM OXALATE. [Concomitant]
     Active Substance: ESCITALOPRAM OXALATE
  76. ALBUTEROL SULFATE HFA [Concomitant]
     Active Substance: ALBUTEROL SULFATE
  77. AMITRIPTYLINE HCL [Concomitant]
     Active Substance: AMITRIPTYLINE
     Dosage: UNK
     Route: 065
  78. OFEV [Concomitant]
     Active Substance: NINTEDANIB
  79. TYLENOL [Concomitant]
     Active Substance: ACETAMINOPHEN
     Dosage: UNK
     Route: 065
  80. LACTULOSE. [Concomitant]
     Active Substance: LACTULOSE
     Dosage: UNK
     Route: 065
  81. ZOFRAN [Concomitant]
     Active Substance: ONDANSETRON HYDROCHLORIDE
  82. MELOXICAM. [Concomitant]
     Active Substance: MELOXICAM
     Route: 065
  83. CORTIZONE 10 [Concomitant]
     Active Substance: HYDROCORTISONE
  84. CHLORASEPTIC SORE THROAT [Concomitant]
     Active Substance: PHENOL
  85. CLONAZEPAM. [Concomitant]
     Active Substance: CLONAZEPAM
  86. CLARITIN?D 12 HOUR [Concomitant]
     Active Substance: LORATADINE\PSEUDOEPHEDRINE SULFATE
  87. ALLEGRA ALLERGY [Concomitant]
     Active Substance: FEXOFENADINE HYDROCHLORIDE

REACTIONS (36)
  - Fall [Not Recovered/Not Resolved]
  - Upper limb fracture [Not Recovered/Not Resolved]
  - Fear of death [Not Recovered/Not Resolved]
  - Bronchitis [Not Recovered/Not Resolved]
  - Rash [Unknown]
  - Hypersomnia [Not Recovered/Not Resolved]
  - Skin infection [Unknown]
  - Contusion [Unknown]
  - Pain [Not Recovered/Not Resolved]
  - Dyspnoea [Not Recovered/Not Resolved]
  - Nausea [Unknown]
  - Decreased appetite [Unknown]
  - Speech disorder [Not Recovered/Not Resolved]
  - Pruritus [Unknown]
  - Eczema [Unknown]
  - Pain in extremity [Unknown]
  - Injection site erythema [Recovering/Resolving]
  - Cough [Not Recovered/Not Resolved]
  - Insomnia [Unknown]
  - Fatigue [Unknown]
  - Pruritus [Unknown]
  - Synovial cyst [Unknown]
  - Therapeutic response shortened [Unknown]
  - Neck pain [Recovering/Resolving]
  - Swelling [Unknown]
  - Suicidal ideation [Unknown]
  - Facial bones fracture [Not Recovered/Not Resolved]
  - Gait disturbance [Not Recovered/Not Resolved]
  - Pain [Unknown]
  - Thought blocking [Not Recovered/Not Resolved]
  - Sinus congestion [Unknown]
  - Dry skin [Unknown]
  - Cellulitis [Unknown]
  - Rib fracture [Not Recovered/Not Resolved]
  - Sleep disorder [Unknown]
  - Arthropod bite [Unknown]

NARRATIVE: CASE EVENT DATE: 2020
